FAERS Safety Report 8947728 (Version 1)
Quarter: 2012Q4

REPORT INFORMATION
  Report Type: 
  Country: US (occurrence: US)
  Receive Date: 20121204
  Receipt Date: 20121204
  Transmission Date: 20130627
  Serious: Yes (Other)
  Sender: FDA-Public Use
  Company Number: US-TEVA-373304USA

PATIENT
  Age: 55 Year
  Sex: Female

DRUGS (1)
  1. NUVIGIL [Suspect]
     Indication: HYPERSOMNIA
     Dosage: QD
     Dates: start: 20121121

REACTIONS (2)
  - Loss of control of legs [Not Recovered/Not Resolved]
  - Off label use [Unknown]
